FAERS Safety Report 8279013-8 (Version None)
Quarter: 2012Q2

REPORT INFORMATION
  Report Type: 
  Country: None (occurrence: None)
  Receive Date: 20120412
  Receipt Date: 20110610
  Transmission Date: 20120825
  Serious: No
  Sender: FDA-Public Use
  Company Number: US-ASTRAZENECA-2011SE35619

PATIENT
  Age: 78 Year
  Sex: Female

DRUGS (5)
  1. LEVOTHYROXINE SODIUM [Concomitant]
     Indication: HYPOTHYROIDISM
  2. ALPRAZOLAM [Concomitant]
     Indication: ANXIETY
  3. ALPRAZOLAM [Concomitant]
     Indication: INSOMNIA
  4. RANITIDINE [Concomitant]
  5. NEXIUM [Suspect]
     Indication: GASTROOESOPHAGEAL REFLUX DISEASE
     Route: 048
     Dates: start: 20101101

REACTIONS (3)
  - OROPHARYNGEAL PAIN [None]
  - GINGIVAL PAIN [None]
  - DRY MOUTH [None]
